FAERS Safety Report 13547999 (Version 1)
Quarter: 2017Q2

REPORT INFORMATION
  Report Type: Spontaneous
  Country: CA (occurrence: CA)
  Receive Date: 20170516
  Receipt Date: 20170516
  Transmission Date: 20170830
  Serious: Yes (Death, Life-Threatening, Hospitalization)
  Sender: FDA-Public Use
  Company Number: CA-MERCK KGAA-2020785

PATIENT
  Age: 71 Year
  Sex: Female

DRUGS (10)
  1. PANTOPRAZOLE [Suspect]
     Active Substance: PANTOPRAZOLE
  2. LORAZEPAM. [Suspect]
     Active Substance: LORAZEPAM
  3. FESOTERODINE [Suspect]
     Active Substance: FESOTERODINE
  4. NOVOTHYROX [Suspect]
     Active Substance: LEVOTHYROXINE SODIUM
     Indication: PRODUCT USED FOR UNKNOWN INDICATION
  5. BUPROPION. [Suspect]
     Active Substance: BUPROPION
  6. CITALOPRAM [Suspect]
     Active Substance: CITALOPRAM HYDROBROMIDE
  7. AMITRIPTYLINE [Suspect]
     Active Substance: AMITRIPTYLINE
  8. ROSUVASTATIN. [Suspect]
     Active Substance: ROSUVASTATIN
  9. PROPRANOLOL [Suspect]
     Active Substance: PROPRANOLOL HYDROCHLORIDE
  10. OXYCODONE [Suspect]
     Active Substance: OXYCODONE

REACTIONS (4)
  - Cardiac arrest [Fatal]
  - Brain injury [Fatal]
  - Overdose [Fatal]
  - Loss of consciousness [Fatal]
